APPROVED DRUG PRODUCT: SODIUM CHLORIDE 0.45% IN PLASTIC CONTAINER
Active Ingredient: SODIUM CHLORIDE
Strength: 450MG/100ML
Dosage Form/Route: INJECTABLE;INJECTION
Application: N018184 | Product #001
Applicant: B BRAUN MEDICAL INC
Approved: Approved Prior to Jan 1, 1982 | RLD: No | RS: No | Type: DISCN